FAERS Safety Report 25156177 (Version 2)
Quarter: 2025Q3

REPORT INFORMATION
  Report Type: Spontaneous
  Country: EU (occurrence: EU)
  Receive Date: 20250403
  Receipt Date: 20250702
  Transmission Date: 20251020
  Serious: Yes (Other)
  Sender: AMGEN
  Company Number: EU-002147023-NVSC2025DE052800

PATIENT
  Sex: Female
  Weight: 55 kg

DRUGS (4)
  1. AIMOVIG [Suspect]
     Active Substance: ERENUMAB-AOOE
     Indication: Migraine with aura
     Dosage: 140 MG, Q4W (EVERY 4 WEEKS)
     Route: 058
     Dates: start: 20230125
  2. NAPROXEN [Concomitant]
     Active Substance: NAPROXEN
     Indication: Product used for unknown indication
     Route: 065
  3. NARATRIPTAN [Concomitant]
     Active Substance: NARATRIPTAN HYDROCHLORIDE
     Indication: Product used for unknown indication
     Route: 065
  4. Novalgin [Concomitant]
     Indication: Product used for unknown indication
     Route: 065

REACTIONS (2)
  - Polycystic ovarian syndrome [Not Recovered/Not Resolved]
  - Cyst rupture [Unknown]

NARRATIVE: CASE EVENT DATE: 20240724
